FAERS Safety Report 19430079 (Version 1)
Quarter: 2021Q2

REPORT INFORMATION
  Report Type: Report from Study
  Country: CN (occurrence: CN)
  Receive Date: 20210617
  Receipt Date: 20210617
  Transmission Date: 20210717
  Serious: Yes (Hospitalization, Other)
  Sender: FDA-Public Use
  Company Number: CN-BRISTOL-MYERS SQUIBB COMPANY-BMS-2021-048715

PATIENT
  Age: 64 Year
  Sex: Female

DRUGS (1)
  1. NIVOLUMAB [Suspect]
     Active Substance: NIVOLUMAB
     Indication: NON-SMALL CELL LUNG CANCER
     Dosage: 340 MILLIGRAM, Q3WK
     Route: 041
     Dates: start: 20210225

REACTIONS (4)
  - Off label use [Unknown]
  - Non-small cell lung cancer recurrent [Unknown]
  - Pyrexia [Unknown]
  - Discomfort [Unknown]
